FAERS Safety Report 10936305 (Version 1)
Quarter: 2015Q1

REPORT INFORMATION
  Report Type: Spontaneous
  Country: US (occurrence: None)
  Receive Date: 20150319
  Receipt Date: 20150319
  Transmission Date: 20150721
  Serious: Yes (Other)
  Sender: FDA-Public Use
  Company Number: None

PATIENT
  Sex: Female

DRUGS (2)
  1. NORCO [Suspect]
     Active Substance: ACETAMINOPHEN\HYDROCODONE BITARTRATE
  2. CL-108 7.5 MG HYDROCODONE 325 MG APAP, 12.5 PROMETHAZIN [Suspect]
     Active Substance: ACETAMINOPHEN\HYDROCODONE\PROMETHAZINE

REACTIONS (1)
  - Intraductal proliferative breast lesion [None]

NARRATIVE: CASE EVENT DATE: 20150122
